FAERS Safety Report 19022982 (Version 1)
Quarter: 2021Q1

REPORT INFORMATION
  Report Type: Spontaneous
  Country: US (occurrence: US)
  Receive Date: 20210318
  Receipt Date: 20210318
  Transmission Date: 20210420
  Serious: No
  Sender: FDA-Public Use
  Company Number: US-ASTRAZENECA-2021A087500

PATIENT
  Age: 26625 Day
  Sex: Female
  Weight: 92.5 kg

DRUGS (6)
  1. LISINOPRIL. [Concomitant]
     Active Substance: LISINOPRIL
  2. CRESTOR [Suspect]
     Active Substance: ROSUVASTATIN CALCIUM
     Dosage: UNKNOWN
     Route: 048
  3. COATED ASPIRIN [Concomitant]
     Active Substance: ASPIRIN
  4. PREMARIN [Concomitant]
     Active Substance: ESTROGENS, CONJUGATED
  5. ONE?A?DAY NOS [Concomitant]
     Active Substance: MINERALS\VITAMINS
  6. ZINC,VITAMIN D3 AND VITAMIN C [Concomitant]

REACTIONS (3)
  - Migraine [Unknown]
  - Paraesthesia oral [Not Recovered/Not Resolved]
  - Drug hypersensitivity [Unknown]

NARRATIVE: CASE EVENT DATE: 20210129
